FAERS Safety Report 5983068-0 (Version None)
Quarter: 2008Q4

REPORT INFORMATION
  Report Type: 
  Country: None (occurrence: None)
  Receive Date: 20081208
  Receipt Date: 20081126
  Transmission Date: 20090506
  Serious: Yes (Other)
  Sender: FDA-Public Use
  Company Number: US-ROCHE-600588

PATIENT
  Sex: Male

DRUGS (1)
  1. FUZEON [Suspect]
     Dosage: FORM: VIAL
     Route: 065
     Dates: start: 20060101

REACTIONS (2)
  - AMYLOIDOSIS [None]
  - INJECTION SITE REACTION [None]
